FAERS Safety Report 4776139-8 (Version None)
Quarter: 2005Q3

REPORT INFORMATION
  Report Type: 
  Country: None (occurrence: None)
  Receive Date: 20050914
  Receipt Date: 20050322
  Transmission Date: 20060218
  Serious: Yes (Hospitalization, Disabling)
  Sender: FDA-Public Use
  Company Number: 163-20785-05030647

PATIENT
  Age: 86 Year
  Sex: Female

DRUGS (3)
  1. THALOMID [Suspect]
     Indication: MULTIPLE MYELOMA
     Dosage: 200MG, DAILY, ORAL
     Route: 048
     Dates: start: 20041220, end: 20050301
  2. DECADRON [Concomitant]
  3. MICRONASE (GLUBENCLAMIDE) [Concomitant]

REACTIONS (2)
  - DIFFICULTY IN WALKING [None]
  - POLYNEUROPATHY [None]
